FAERS Safety Report 9153299 (Version 4)
Quarter: 2013Q3

REPORT INFORMATION
  Report Type: Spontaneous
  Country: US (occurrence: US)
  Receive Date: 20130311
  Receipt Date: 20130828
  Transmission Date: 20140515
  Serious: No
  Sender: FDA-Public Use
  Company Number: US-BIOGENIDEC-2013BI021163

PATIENT
  Age: 61 Year
  Sex: Female

DRUGS (2)
  1. TYSABRI [Suspect]
     Indication: MULTIPLE SCLEROSIS
     Route: 042
     Dates: start: 20090520, end: 20100510
  2. TYSABRI [Suspect]
     Indication: MULTIPLE SCLEROSIS
     Route: 042
     Dates: start: 20130227

REACTIONS (13)
  - Immune system disorder [Not Recovered/Not Resolved]
  - Local swelling [Recovered/Resolved]
  - Gait disturbance [Not Recovered/Not Resolved]
  - Palpitations [Recovered/Resolved with Sequelae]
  - Nervousness [Recovered/Resolved with Sequelae]
  - Weight increased [Not Recovered/Not Resolved]
  - Oedema [Recovered/Resolved with Sequelae]
  - Asthenia [Recovered/Resolved]
  - Urinary tract infection [Recovered/Resolved]
  - Fatigue [Not Recovered/Not Resolved]
  - Pyrexia [Recovered/Resolved]
  - Drug ineffective [Not Recovered/Not Resolved]
  - Gastritis fungal [Not Recovered/Not Resolved]
